FAERS Safety Report 8063955-2 (Version None)
Quarter: 2012Q1

REPORT INFORMATION
  Report Type: 
  Country: None (occurrence: None)
  Receive Date: 20120123
  Receipt Date: 20120113
  Transmission Date: 20120608
  Serious: Yes (Disabling, Other)
  Sender: FDA-Public Use
  Company Number: PHHY2011AU097709

PATIENT
  Sex: Female
  Weight: 73 kg

DRUGS (2)
  1. MEDROXYPROGESTERONE ACETATE [Concomitant]
     Indication: MENSTRUATION IRREGULAR
     Dosage: 1 DF, QMO
     Route: 058
  2. GLEEVEC [Suspect]
     Indication: CHRONIC MYELOID LEUKAEMIA
     Dosage: 400 MG, UNK
     Route: 048
     Dates: start: 20110310, end: 20111104

REACTIONS (6)
  - GASTROINTESTINAL DISORDER [None]
  - VOMITING [None]
  - WEIGHT DECREASED [None]
  - TOXICITY TO VARIOUS AGENTS [None]
  - NAUSEA [None]
  - ABDOMINAL PAIN [None]
